FAERS Safety Report 23656527 (Version 2)
Quarter: 2024Q2

REPORT INFORMATION
  Report Type: Spontaneous
  Country: CA (occurrence: CA)
  Receive Date: 20240321
  Receipt Date: 20240621
  Transmission Date: 20240715
  Serious: Yes (Hospitalization, Other)
  Sender: FDA-Public Use
  Company Number: None

PATIENT
  Age: 13 Year
  Sex: Female

DRUGS (10)
  1. NORDITROPIN [Suspect]
     Active Substance: SOMATROPIN
     Dosage: 750 ?G, QD
     Route: 058
  2. NORDITROPIN [Suspect]
     Active Substance: SOMATROPIN
     Dosage: 1200 ?G, QD
     Route: 058
  3. NORDITROPIN [Suspect]
     Active Substance: SOMATROPIN
     Dosage: 800 ?G, QD
     Route: 058
  4. NORDITROPIN [Suspect]
     Active Substance: SOMATROPIN
     Dosage: 1650 ?G, QD
     Route: 058
  5. NORDITROPIN [Suspect]
     Active Substance: SOMATROPIN
     Indication: Turner^s syndrome
     Dosage: 600 ?G, QD(371 DAYS),
     Route: 058
  6. NORDITROPIN [Suspect]
     Active Substance: SOMATROPIN
     Dosage: 700 ?G, QD
     Route: 058
  7. AMLODIPINE [Suspect]
     Active Substance: AMLODIPINE BESYLATE
     Dosage: 2500 ?G, QD
  8. AMLODIPINE [Suspect]
     Active Substance: AMLODIPINE BESYLATE
     Indication: Product used for unknown indication
     Dosage: 5 MG, QD (365 DAYS THERAPY DURATION)
  9. AMLODIPINE [Suspect]
     Active Substance: AMLODIPINE BESYLATE
     Dosage: 7500 ?G, QD
  10. ASPIRIN [Concomitant]
     Active Substance: ASPIRIN
     Dosage: UNK

REACTIONS (3)
  - Cardiac operation [Unknown]
  - Coronary artery bypass [Unknown]
  - Arthralgia [Unknown]
